FAERS Safety Report 7706461-4 (Version None)
Quarter: 2011Q3

REPORT INFORMATION
  Report Type: 
  Country: None (occurrence: None)
  Receive Date: 20110824
  Receipt Date: 20110816
  Transmission Date: 20111222
  Serious: Yes (Other)
  Sender: FDA-Public Use
  Company Number: DK-JNJFOC-20110409384

PATIENT
  Sex: Male

DRUGS (6)
  1. SIMAVASTATIN [Concomitant]
     Indication: HYPERCHOLESTEROLAEMIA
     Route: 065
  2. REMICADE [Suspect]
     Indication: ARTHRITIS REACTIVE
     Dosage: 400 MG WEEK 0,2,6,8
     Route: 042
     Dates: start: 20090506, end: 20100601
  3. SERETIDE [Concomitant]
     Indication: ASTHMA
     Route: 055
  4. REMICADE [Suspect]
     Indication: ARTHRITIS
     Dosage: 400 MG WEEK 0,2,6,8
     Route: 042
     Dates: start: 20090506, end: 20100601
  5. METHOTREXATE [Concomitant]
     Route: 048
     Dates: start: 20090423, end: 20100401
  6. ALLOPURINOL [Concomitant]
     Indication: GOUT
     Route: 065

REACTIONS (1)
  - RECTAL CANCER [None]
